FAERS Safety Report 4916491-3 (Version None)
Quarter: 2006Q1

REPORT INFORMATION
  Report Type: 
  Country: None (occurrence: None)
  Receive Date: 20060220
  Receipt Date: 20051031
  Transmission Date: 20060701
  Serious: Yes (Hospitalization)
  Sender: FDA-Public Use
  Company Number: JP-SOLVAY-00305003694

PATIENT
  Age: 20013 Day
  Sex: Female
  Weight: 57 kg

DRUGS (6)
  1. SULPIRIDE [Concomitant]
     Indication: DEPRESSION
     Dosage: DAILY DOSE: 150 MILLIGRAM(S)
     Route: 048
  2. DEPROMEL 25 [Suspect]
     Indication: DEPRESSION
     Dosage: DAILY DOSE: 50 MILLIGRAM(S)
     Route: 048
  3. DEPROMEL 25 [Suspect]
     Dosage: DAILY DOSE: 100 MILLIGRAM(S)
     Route: 048
     Dates: start: 20031020, end: 20031225
  4. LENDORMIN [Concomitant]
     Indication: INSOMNIA
     Dosage: DAILY DOSE: .25 MILLIGRAM(S)
     Route: 048
     Dates: start: 20031120
  5. INTRON A [Concomitant]
     Indication: PROPHYLAXIS
     Dosage: DAILY DOSE: 300 MIU(1,000,000S) TWICE A WEEK
     Route: 065
     Dates: start: 19990831
  6. MAGNESIUM OXIDE [Concomitant]
     Indication: CONSTIPATION
     Dosage: DAILY DOSE: 1.5 GRAM(S)
     Route: 048
     Dates: start: 20031120

REACTIONS (4)
  - DRUG WITHDRAWAL HEADACHE [None]
  - DRUG WITHDRAWAL SYNDROME [None]
  - INITIAL INSOMNIA [None]
  - NEUTROPHIL COUNT DECREASED [None]
